FAERS Safety Report 25637532 (Version 2)
Quarter: 2025Q3

REPORT INFORMATION
  Report Type: Report from Study
  Country: KR (occurrence: KR)
  Receive Date: 20250804
  Receipt Date: 20250820
  Transmission Date: 20251021
  Serious: Yes (Other)
  Sender: AMGEN
  Company Number: KR-AMGEN-KORNI2025080686

PATIENT
  Age: 66 Year
  Sex: Male

DRUGS (2)
  1. TARLATAMAB [Suspect]
     Active Substance: TARLATAMAB
     Indication: Small cell lung cancer
     Route: 040
     Dates: start: 20250116
  2. TARLATAMAB [Suspect]
     Active Substance: TARLATAMAB
     Route: 040
     Dates: end: 20250305

REACTIONS (1)
  - Small cell lung cancer [Unknown]
